FAERS Safety Report 13329747 (Version 1)
Quarter: 2017Q1

REPORT INFORMATION
  Report Type: Spontaneous
  Country: MX (occurrence: MX)
  Receive Date: 20170313
  Receipt Date: 20170313
  Transmission Date: 20170428
  Serious: Yes (Death)
  Sender: FDA-Public Use
  Company Number: MX-ACTELION-A-CH2017-150556

PATIENT
  Age: 13 Year
  Sex: Female

DRUGS (1)
  1. ZAVESCA [Suspect]
     Active Substance: MIGLUSTAT
     Indication: MUCOPOLYSACCHARIDOSIS III
     Dosage: 100 MG, OD
     Route: 048
     Dates: start: 2015, end: 201701

REACTIONS (5)
  - Mucopolysaccharidosis III [Fatal]
  - Diarrhoea [Unknown]
  - Cardiac disorder [Fatal]
  - General physical health deterioration [Unknown]
  - Cardiac arrest [Fatal]

NARRATIVE: CASE EVENT DATE: 201702
